FAERS Safety Report 25629364 (Version 1)
Quarter: 2025Q3

REPORT INFORMATION
  Report Type: Spontaneous
  Country: EU (occurrence: EU)
  Receive Date: 20250731
  Receipt Date: 20250731
  Transmission Date: 20251020
  Serious: Yes (Hospitalization, Other)
  Sender: MYLAN
  Company Number: EU-ROCHE-10000336453

PATIENT
  Sex: Female

DRUGS (1)
  1. MYCOPHENOLATE MOFETIL [Suspect]
     Active Substance: MYCOPHENOLATE MOFETIL
     Indication: Systemic lupus erythematosus

REACTIONS (8)
  - Hepatorenal failure [Unknown]
  - Haemophagocytic lymphohistiocytosis [Unknown]
  - Varicella zoster virus infection [Unknown]
  - Cytomegalovirus viraemia [Unknown]
  - Immunodeficiency [Unknown]
  - Thrombocytopenia [Unknown]
  - Lymphopenia [Unknown]
  - Off label use [Unknown]
